FAERS Safety Report 15060445 (Version 9)
Quarter: 2019Q2

REPORT INFORMATION
  Report Type: Report from Study
  Country: CN (occurrence: CN)
  Receive Date: 20180625
  Receipt Date: 20190603
  Transmission Date: 20190711
  Serious: Yes (Hospitalization, Other)
  Sender: FDA-Public Use
  Company Number: PHHY2018CN028532

PATIENT
  Age: 32 Year
  Sex: Male
  Weight: 55 kg

DRUGS (21)
  1. SIMULECT [Suspect]
     Active Substance: BASILIXIMAB
     Indication: RENAL TRANSPLANT
     Dosage: 20 MG, QD
     Route: 042
     Dates: start: 20180508, end: 20180508
  2. VANCOMYCIN HYDROCHLORIDE. [Concomitant]
     Active Substance: VANCOMYCIN HYDROCHLORIDE
     Indication: INFECTION PROPHYLAXIS
     Dosage: 500 MG, SOS
     Route: 042
     Dates: start: 20180515, end: 20180515
  3. PROMETHAZINE [Concomitant]
     Active Substance: PROMETHAZINE\PROMETHAZINE HYDROCHLORIDE
     Indication: SEDATIVE THERAPY
     Dosage: 2 DF, TID
     Route: 048
     Dates: start: 20180509, end: 20180524
  4. CLOSTRIDIUM BUTYRICUM [Concomitant]
     Active Substance: CLOSTRIDIUM BUTYRICUM SPORES STRAIN M-55
     Indication: ANTIDIARRHOEAL SUPPORTIVE CARE
     Dosage: 40 MG, TID
     Route: 048
     Dates: start: 20180509, end: 20180523
  5. PANTOPRAZOLE SODIUM. [Concomitant]
     Active Substance: PANTOPRAZOLE SODIUM
     Indication: GASTRIC PH INCREASED
     Dosage: 40 MG, TID
     Route: 048
     Dates: start: 20180512, end: 20180524
  6. MYFORTIC [Suspect]
     Active Substance: MYCOPHENOLATE SODIUM
     Indication: PROPHYLAXIS
     Dosage: 1400 MG, QD
     Route: 065
     Dates: start: 20180509
  7. MYFORTIC [Suspect]
     Active Substance: MYCOPHENOLATE SODIUM
     Dosage: 540 MG, BID
     Route: 048
     Dates: start: 20180524
  8. BICYCLOL [Concomitant]
     Active Substance: BICYCLOL
     Indication: HEPATIC ENZYME INCREASED
     Dosage: 50 MG, TID
     Route: 048
     Dates: start: 20180514, end: 20180613
  9. BICYCLOL [Concomitant]
     Active Substance: BICYCLOL
     Indication: CHRONIC HEPATITIS
  10. CASPOFUNGIN ACETATE. [Concomitant]
     Active Substance: CASPOFUNGIN ACETATE
     Dosage: 50 MG, QD
     Route: 042
     Dates: start: 20180509, end: 20180515
  11. MYFORTIC [Suspect]
     Active Substance: MYCOPHENOLATE SODIUM
     Indication: RENAL TRANSPLANT
     Dosage: 1400 MG, QD
     Route: 048
     Dates: start: 20180508, end: 20180508
  12. CEFOPERAZONE [Concomitant]
     Active Substance: CEFOPERAZONE
     Indication: INFECTION
     Dosage: 2 G, Q12H
     Route: 042
     Dates: start: 20180509, end: 20180515
  13. ESOMEPRAZOLE SODIUM. [Concomitant]
     Active Substance: ESOMEPRAZOLE SODIUM
     Dosage: 40 MG, QD
     Route: 042
     Dates: start: 20180509, end: 20180512
  14. HUMAN HEPATITIS B IMMUNOGLOBULIN [Concomitant]
     Indication: ANTIVIRAL PROPHYLAXIS
     Dosage: 400 IU, SOS
     Route: 030
     Dates: start: 20180509, end: 20180509
  15. CASPOFUNGIN ACETATE. [Concomitant]
     Active Substance: CASPOFUNGIN ACETATE
     Indication: INFECTION PROPHYLAXIS
     Dosage: 50 MG, SOS
     Route: 042
     Dates: start: 20180509, end: 20180509
  16. HYDROTALCITE [Concomitant]
     Active Substance: HYDROTALCITE
     Indication: GASTRIC PH INCREASED
     Dosage: 1000 MG, QD
     Route: 048
     Dates: start: 20180509, end: 20180602
  17. RECOMBINANT HUMAN ERYTHROPOIETIN [Concomitant]
     Active Substance: ERYTHROPOIETIN
     Indication: PLATELET COUNT INCREASED
     Dosage: 6000 IU, SOS
     Route: 042
     Dates: start: 20180515, end: 20180515
  18. TACROLIMUS. [Concomitant]
     Active Substance: TACROLIMUS
     Indication: IMMUNOSUPPRESSANT DRUG THERAPY
     Route: 065
  19. ESOMEPRAZOLE SODIUM. [Concomitant]
     Active Substance: ESOMEPRAZOLE SODIUM
     Indication: GASTRIC PH DECREASED
     Dosage: 40 MG, SOS
     Route: 042
     Dates: start: 20180509, end: 20180509
  20. SULPERAZON [Concomitant]
     Active Substance: CEFOPERAZONE SODIUM\SULBACTAM SODIUM
     Indication: INFECTION PROPHYLAXIS
     Dosage: 2 G, Q12H
     Route: 042
     Dates: start: 20180509, end: 20180515
  21. RECOMBINANT HUMAN ERYTHROPOIETIN [Concomitant]
     Active Substance: ERYTHROPOIETIN
     Indication: NEPHROGENIC ANAEMIA
     Dosage: 6000 IU, UNK (W3D)
     Route: 042
     Dates: start: 20180515, end: 20180524

REACTIONS (11)
  - Ureteric obstruction [Recovered/Resolved]
  - Anaemia [Recovered/Resolved]
  - Liver function test abnormal [Recovered/Resolved]
  - Ureteric stenosis [Recovered/Resolved]
  - Blood creatinine increased [Not Recovered/Not Resolved]
  - Effusion [Recovered/Resolved]
  - Delayed graft function [Recovered/Resolved]
  - Hydronephrosis [Recovered/Resolved]
  - Ureteric dilatation [Recovered/Resolved]
  - Transplantation complication [Recovered/Resolved]
  - Procedural pain [Recovered/Resolved]

NARRATIVE: CASE EVENT DATE: 20180509
